FAERS Safety Report 13467099 (Version 1)
Quarter: 2017Q2

REPORT INFORMATION
  Report Type: Spontaneous
  Country: NP (occurrence: NP)
  Receive Date: 20170421
  Receipt Date: 20170421
  Transmission Date: 20170830
  Serious: Yes (Hospitalization)
  Sender: FDA-Public Use
  Company Number: NP-MYLANLABS-2017M1024141

PATIENT

DRUGS (1)
  1. OLANZAPINE. [Suspect]
     Active Substance: OLANZAPINE
     Indication: INTENTIONAL OVERDOSE
     Dosage: 400 MG
     Route: 048

REACTIONS (5)
  - Somnolence [Unknown]
  - Respiratory alkalosis [Unknown]
  - Intentional overdose [Unknown]
  - Muscle disorder [Recovered/Resolved]
  - Vomiting [Unknown]
